FAERS Safety Report 8095214-6 (Version None)
Quarter: 2012Q1

REPORT INFORMATION
  Report Type: 
  Country: None (occurrence: None)
  Receive Date: 20120129
  Receipt Date: 20111229
  Transmission Date: 20120608
  Serious: No
  Sender: FDA-Public Use
  Company Number: US-ABBOTT-11P-163-0887808-00

PATIENT
  Age: 43 Year
  Sex: Female

DRUGS (4)
  1. HUMIRA [Suspect]
     Indication: CROHN'S DISEASE
     Dates: start: 20111109
  2. LEXAPRO [Concomitant]
     Indication: MENOPAUSAL SYMPTOMS
  3. LEXAPRO [Concomitant]
     Indication: DEPRESSION
     Dosage: AT NIGHT
     Route: 048
  4. WELLBUTRIN [Concomitant]
     Indication: DEPRESSION
     Dosage: IN THE MORNING
     Route: 048

REACTIONS (7)
  - SINUS CONGESTION [None]
  - PRODUCTIVE COUGH [None]
  - PYREXIA [None]
  - SPUTUM DISCOLOURED [None]
  - PAIN [None]
  - MALAISE [None]
  - NASAL CONGESTION [None]
